FAERS Safety Report 8198595-8 (Version None)
Quarter: 2012Q1

REPORT INFORMATION
  Report Type: 
  Country: None (occurrence: None)
  Receive Date: 20120309
  Receipt Date: 20120110
  Transmission Date: 20120608
  Serious: No
  Sender: FDA-Public Use
  Company Number: US-AMGEN-USASP2012001942

PATIENT
  Age: 85 Year
  Sex: Female

DRUGS (8)
  1. DILTIAZEM HCL [Concomitant]
     Dosage: UNK
  2. TAMOXIFEN CITRATE [Concomitant]
  3. PROLIA [Suspect]
     Indication: OSTEOPOROSIS POSTMENOPAUSAL
     Dosage: 60 MG, Q6MO
     Dates: start: 20111219
  4. WARFARIN SODIUM [Concomitant]
  5. SYNTHROID [Concomitant]
  6. VITAMIN B-12 [Concomitant]
  7. SPIRIVA [Concomitant]
  8. POTASSIUM                          /00031402/ [Concomitant]
     Dosage: UNK

REACTIONS (6)
  - FEELING ABNORMAL [None]
  - CHILLS [None]
  - BALANCE DISORDER [None]
  - FALL [None]
  - PAIN IN EXTREMITY [None]
  - GAIT DISTURBANCE [None]
